FAERS Safety Report 4978305-5 (Version None)
Quarter: 2006Q2

REPORT INFORMATION
  Report Type: 
  Country: None (occurrence: None)
  Receive Date: 20060414
  Receipt Date: 20060403
  Transmission Date: 20061013
  Serious: Yes (Hospitalization)
  Sender: FDA-Public Use
  Company Number: PCA0606991

PATIENT
  Age: 82 Year
  Sex: Female
  Weight: 73.4827 kg

DRUGS (4)
  1. MINOXIDIL [Suspect]
     Indication: ALOPECIA
     Dosage: 1ML/DAILY/TOPICAL
     Route: 061
     Dates: start: 20051001, end: 20060315
  2. BENICAR [Concomitant]
  3. BLADDER MEDICINE [Concomitant]
  4. AMBIEN [Concomitant]

REACTIONS (3)
  - BLOOD PRESSURE INCREASED [None]
  - DIZZINESS [None]
  - SYNCOPE [None]
